FAERS Safety Report 18526673 (Version 2)
Quarter: 2021Q1

REPORT INFORMATION
  Report Type: Spontaneous
  Country: DE (occurrence: DE)
  Receive Date: 20201120
  Receipt Date: 20210105
  Transmission Date: 20210419
  Serious: Yes (Hospitalization, Other)
  Sender: FDA-Public Use
  Company Number: DE-TORRENT-00018930

PATIENT
  Age: 41 Year
  Sex: Male

DRUGS (1)
  1. DULOXETINE. [Suspect]
     Active Substance: DULOXETINE
     Indication: DEPRESSION
     Dosage: INITIALLY 30 MG WAS RECEIVED WHICH WAS INCREASED TO 60 MG/DAY

REACTIONS (1)
  - Serotonin syndrome [Recovered/Resolved]
